FAERS Safety Report 7678093-8 (Version None)
Quarter: 2011Q3

REPORT INFORMATION
  Report Type: 
  Country: None (occurrence: None)
  Receive Date: 20110811
  Receipt Date: 20110801
  Transmission Date: 20111222
  Serious: Yes (Hospitalization)
  Sender: FDA-Public Use
  Company Number: US-JNJFOC-20090802142

PATIENT
  Sex: Male
  Weight: 43.2 kg

DRUGS (8)
  1. COUMADIN [Concomitant]
  2. FLORASTOR [Concomitant]
  3. LEXAPRO [Concomitant]
  4. FOLIC ACID [Concomitant]
  5. REMICADE [Suspect]
     Indication: INFLAMMATORY BOWEL DISEASE
     Route: 042
     Dates: start: 20080204
  6. MULTIVITAMINS WITH IRON [Concomitant]
  7. VALCYTE [Concomitant]
  8. REMICADE [Suspect]
     Dosage: TOTAL 12 DOSES
     Route: 042
     Dates: start: 20090216

REACTIONS (2)
  - INFLAMMATORY BOWEL DISEASE [None]
  - UNEVALUABLE EVENT [None]
